FAERS Safety Report 7389220-4 (Version None)
Quarter: 2011Q2

REPORT INFORMATION
  Report Type: 
  Country: None (occurrence: None)
  Receive Date: 20110401
  Receipt Date: 20110322
  Transmission Date: 20111010
  Serious: No
  Sender: FDA-Public Use
  Company Number: JP-JNJFOC-20110300457

PATIENT
  Age: 69 Year
  Sex: Male
  Weight: 43 kg

DRUGS (6)
  1. ITRIZOLE [Suspect]
     Indication: SYSTEMIC MYCOSIS
     Route: 041
  2. MICONAZOLE [Suspect]
     Route: 065
  3. ITRIZOLE [Suspect]
     Indication: PRODUCT USED FOR UNKNOWN INDICATION
     Route: 048
  4. ITRIZOLE [Suspect]
     Route: 041
  5. MICONAZOLE [Suspect]
     Indication: PRODUCT USED FOR UNKNOWN INDICATION
     Route: 065
  6. CARBENIN [Concomitant]
     Route: 065

REACTIONS (1)
  - LIVER DISORDER [None]
